FAERS Safety Report 6148615-7 (Version None)
Quarter: 2009Q2

REPORT INFORMATION
  Report Type: 
  Country: None (occurrence: None)
  Receive Date: 20090408
  Receipt Date: 20090402
  Transmission Date: 20091009
  Serious: Yes (Hospitalization, Other)
  Sender: FDA-Public Use
  Company Number: IT-NOVOPROD-284080

PATIENT
  Sex: Male
  Weight: 73 kg

DRUGS (7)
  1. NOVORAPID [Suspect]
     Indication: DIABETES MELLITUS
     Dosage: 54 IU, QD
     Route: 058
     Dates: start: 20070201
  2. LEVEMIR [Concomitant]
     Indication: DIABETES MELLITUS
     Dosage: 38 IU, QD
     Route: 058
     Dates: start: 20070301
  3. ASPIRIN [Concomitant]
  4. TENORMIN [Concomitant]
  5. MONOKET [Concomitant]
  6. VASTAREL [Concomitant]
  7. PANCREX [Concomitant]

REACTIONS (2)
  - BLOOD GLUCOSE INCREASED [None]
  - SYNCOPE [None]
